FAERS Safety Report 6684688-0 (Version None)
Quarter: 2010Q2

REPORT INFORMATION
  Report Type: 
  Country: None (occurrence: None)
  Receive Date: 20100416
  Receipt Date: 20100324
  Transmission Date: 20101027
  Serious: No
  Sender: FDA-Public Use
  Company Number: JP-ROCHE-697450

PATIENT
  Age: 18 Year
  Sex: Female

DRUGS (1)
  1. TAMIFLU [Suspect]
     Indication: INFLUENZA
     Dosage: FORM:ORAL FORMATION (NOT OTHERWISE SPECIFIED)
     Route: 048
     Dates: start: 20091106, end: 20091110

REACTIONS (1)
  - DRUG EXPOSURE DURING PREGNANCY [None]
